FAERS Safety Report 6540349-X (Version None)
Quarter: 2010Q1

REPORT INFORMATION
  Report Type: 
  Country: None (occurrence: None)
  Receive Date: 20100115
  Receipt Date: 20100111
  Transmission Date: 20100710
  Serious: Yes (Other)
  Sender: FDA-Public Use
  Company Number: US-GENENTECH-287344

PATIENT

DRUGS (1)
  1. RITUXAN [Suspect]
     Indication: AUTOIMMUNE PANCYTOPENIA
     Route: 065

REACTIONS (1)
  - ANTIBODY TEST ABNORMAL [None]
